FAERS Safety Report 15434271 (Version 2)
Quarter: 2018Q4

REPORT INFORMATION
  Report Type: Spontaneous
  Country: FR (occurrence: FR)
  Receive Date: 20180927
  Receipt Date: 20181216
  Transmission Date: 20190204
  Serious: Yes (Death)
  Sender: FDA-Public Use
  Company Number: PHHY2018FR109799

PATIENT
  Sex: Male

DRUGS (2)
  1. ENTRESTO [Suspect]
     Active Substance: SACUBITRIL\VALSARTAN
     Indication: NON-OBSTRUCTIVE CARDIOMYOPATHY
     Dosage: 100 MG, BID (49/51MG)
     Route: 065
     Dates: start: 201702
  2. ENTRESTO [Suspect]
     Active Substance: SACUBITRIL\VALSARTAN
     Dosage: 50 MG (24/26 MG), UNK
     Route: 065
     Dates: end: 201801

REACTIONS (4)
  - Product use in unapproved indication [Unknown]
  - Contraindicated product administered [Unknown]
  - Renal impairment [Fatal]
  - Cardiac failure [Fatal]
